FAERS Safety Report 7685318-1 (Version None)
Quarter: 2011Q3

REPORT INFORMATION
  Report Type: 
  Country: None (occurrence: None)
  Receive Date: 20110816
  Receipt Date: 20110803
  Transmission Date: 20111222
  Serious: Yes (Hospitalization)
  Sender: FDA-Public Use
  Company Number: US-CELGENEUS-163-21880-11080566

PATIENT
  Sex: Male

DRUGS (5)
  1. REVLIMID [Suspect]
     Dosage: 10 MILLIGRAM
     Route: 048
     Dates: start: 20110614, end: 20110712
  2. CEPHALEXIN [Concomitant]
     Dosage: 500 MILLIGRAM
     Dates: start: 20110728
  3. REVLIMID [Suspect]
     Dosage: 5 MILLIGRAM
     Route: 048
     Dates: start: 20110801
  4. TAMSULOSIN HCL [Concomitant]
     Dosage: .4 MILLIGRAM
     Dates: start: 20110720
  5. PANTOPRAZOLE [Concomitant]
     Dosage: 1
     Dates: start: 20110720

REACTIONS (1)
  - HAEMORRHAGE [None]
